FAERS Safety Report 7997632-0 (Version None)
Quarter: 2011Q4

REPORT INFORMATION
  Report Type: 
  Country: None (occurrence: None)
  Receive Date: 20111221
  Receipt Date: 20111214
  Transmission Date: 20120403
  Serious: Yes (Hospitalization)
  Sender: FDA-Public Use
  Company Number: US-US-EMD SERONO, INC.-7101673

PATIENT
  Sex: Male

DRUGS (2)
  1. REBIF [Suspect]
     Route: 058
     Dates: start: 20111213
  2. REBIF [Suspect]
     Indication: MULTIPLE SCLEROSIS
     Route: 058
     Dates: start: 20111123

REACTIONS (3)
  - CONFUSIONAL STATE [None]
  - PYREXIA [None]
  - NAUSEA [None]
